FAERS Safety Report 10193259 (Version 1)
Quarter: 2014Q2

REPORT INFORMATION
  Report Type: Spontaneous
  Country: US (occurrence: US)
  Receive Date: 20140524
  Receipt Date: 20140524
  Transmission Date: 20141212
  Serious: No
  Sender: FDA-Public Use
  Company Number: US-SA-2013SA116854

PATIENT
  Age: 73 Year
  Sex: Female

DRUGS (2)
  1. LANTUS SOLOSTAR [Suspect]
     Indication: TYPE 1 DIABETES MELLITUS
     Dosage: DOSE:55 UNIT(S)
     Route: 058
  2. SOLOSTAR [Concomitant]
     Indication: TYPE 1 DIABETES MELLITUS

REACTIONS (4)
  - Visual impairment [Unknown]
  - Memory impairment [Unknown]
  - Injection site pain [Unknown]
  - Incorrect product storage [Unknown]
